FAERS Safety Report 6733096-2 (Version None)
Quarter: 2010Q2

REPORT INFORMATION
  Report Type: 
  Country: None (occurrence: None)
  Receive Date: 20100518
  Receipt Date: 20100507
  Transmission Date: 20101027
  Serious: Yes (Other)
  Sender: FDA-Public Use
  Company Number: 2010-00479

PATIENT
  Age: 59 Year
  Sex: Female
  Weight: 77.4 kg

DRUGS (3)
  1. SIMVASTATIN [Suspect]
     Indication: BLOOD CHOLESTEROL INCREASED
     Dosage: 40 MG, ORAL
     Route: 048
     Dates: start: 20100329, end: 20100401
  2. LEVOTHYROXINE SODIUM [Concomitant]
  3. LOSARTAN POTASSIUM [Concomitant]

REACTIONS (4)
  - DEPRESSION [None]
  - EMOTIONAL DISTRESS [None]
  - MUSCLE RIGIDITY [None]
  - MYALGIA [None]
